FAERS Safety Report 7817518-1 (Version None)
Quarter: 2011Q4

REPORT INFORMATION
  Report Type: 
  Country: None (occurrence: None)
  Receive Date: 20111017
  Receipt Date: 20111004
  Transmission Date: 20120403
  Serious: Yes (Other)
  Sender: FDA-Public Use
  Company Number: JP-ROCHE-750331

PATIENT
  Sex: Male

DRUGS (65)
  1. ACTEMRA [Suspect]
     Route: 042
     Dates: start: 20100114, end: 20101202
  2. ESPO [Concomitant]
     Route: 058
     Dates: end: 20101020
  3. PREDNISOLONE [Concomitant]
     Route: 048
     Dates: start: 20090711, end: 20090714
  4. PREDNISOLONE [Concomitant]
     Route: 048
     Dates: start: 20090822, end: 20090825
  5. PREDNISOLONE [Concomitant]
     Route: 048
     Dates: start: 20091030, end: 20091102
  6. PREDNISOLONE [Concomitant]
     Route: 048
     Dates: start: 20100402, end: 20100405
  7. PREDNISOLONE [Concomitant]
     Route: 048
     Dates: start: 20100414, end: 20100417
  8. ALLOPURINOL [Concomitant]
     Route: 048
  9. PURSENNID [Concomitant]
     Route: 048
     Dates: start: 20101206
  10. LENDORMIN [Concomitant]
     Route: 048
     Dates: start: 20101216
  11. PRANLUKAST [Concomitant]
     Route: 048
     Dates: start: 20101215
  12. THEOLONG [Concomitant]
     Route: 048
  13. REBAMIPIDE [Concomitant]
     Route: 048
     Dates: end: 20101205
  14. ACTEMRA [Suspect]
     Route: 042
     Dates: start: 20110107, end: 20110204
  15. PREDNISOLONE [Concomitant]
     Route: 048
     Dates: start: 20100115, end: 20100118
  16. PREDNISOLONE [Concomitant]
     Route: 048
     Dates: start: 20100205, end: 20100208
  17. PREDNISOLONE [Concomitant]
     Route: 048
     Dates: start: 20100827, end: 20100830
  18. SINGULAIR [Concomitant]
     Route: 048
     Dates: start: 20101216
  19. PROMAC [Concomitant]
     Route: 048
     Dates: start: 20101215
  20. MYONAL [Concomitant]
     Route: 048
  21. OLOPATADINE HCL [Concomitant]
     Route: 048
     Dates: start: 20101216
  22. NESPO [Concomitant]
     Route: 058
     Dates: start: 20101117, end: 20101117
  23. PREDNISOLONE [Concomitant]
     Route: 048
     Dates: start: 20091211, end: 20091214
  24. PREDNISOLONE [Concomitant]
     Route: 048
     Dates: start: 20100910, end: 20100913
  25. PREDNISOLONE [Concomitant]
     Route: 048
     Dates: start: 20100910, end: 20100913
  26. OMEPRAZOLE [Concomitant]
     Dosage: DRUG: OMERAP
     Route: 048
     Dates: end: 20101215
  27. NEOMALLERMIN-TR [Concomitant]
     Route: 048
     Dates: end: 20101215
  28. NESPO [Concomitant]
     Route: 058
     Dates: start: 20101121, end: 20101121
  29. ACTEMRA [Suspect]
     Route: 042
     Dates: start: 20090319, end: 20100104
  30. PERSANTIN [Concomitant]
     Route: 048
     Dates: end: 20101205
  31. ALFAROL [Concomitant]
     Route: 048
     Dates: start: 20101020, end: 20101215
  32. GOODMIN [Concomitant]
     Route: 048
     Dates: end: 20101215
  33. TOLBUTAMIDE [Suspect]
     Indication: DIABETES MELLITUS
     Route: 048
  34. PREDNISOLONE [Concomitant]
     Route: 048
     Dates: start: 20090613, end: 20090616
  35. PREDNISOLONE [Concomitant]
     Route: 048
     Dates: start: 20090808, end: 20090811
  36. PREDNISOLONE [Concomitant]
     Route: 048
     Dates: start: 20100611, end: 20100614
  37. PURSENNID [Concomitant]
     Route: 048
     Dates: end: 20101205
  38. PREDNISOLONE [Concomitant]
     Route: 048
     Dates: start: 20091017, end: 20091020
  39. PREDNISOLONE [Concomitant]
     Route: 048
     Dates: start: 20091127, end: 20091130
  40. PREDNISOLONE [Concomitant]
     Route: 048
     Dates: start: 20100806, end: 20100809
  41. PREDNISOLONE [Concomitant]
     Route: 048
     Dates: start: 20100924, end: 20100927
  42. LANSOPRAZOLE [Concomitant]
     Route: 048
     Dates: start: 20101216
  43. LOSARTAN POTASSIUM [Concomitant]
     Dates: end: 20101215
  44. MARZULENE-S [Concomitant]
     Route: 048
     Dates: start: 20101205
  45. KAYEXALATE [Concomitant]
     Route: 048
     Dates: end: 20101205
  46. ADOAIR [Concomitant]
     Route: 055
  47. PREDNISOLONE [Concomitant]
     Route: 048
     Dates: start: 20090530, end: 20090602
  48. PREDNISOLONE [Concomitant]
     Route: 048
     Dates: start: 20090905, end: 20090908
  49. PREDNISOLONE [Concomitant]
     Route: 048
     Dates: start: 20091003, end: 20091006
  50. PREDNISOLONE [Concomitant]
     Route: 048
     Dates: start: 20091113, end: 20091116
  51. PREDNISOLONE [Concomitant]
     Route: 048
     Dates: start: 20100429, end: 20100502
  52. PREDNISOLONE [Concomitant]
     Route: 048
     Dates: start: 20100514, end: 20100517
  53. PREDNISOLONE [Concomitant]
     Route: 048
     Dates: start: 20100528, end: 20100531
  54. PREDNISOLONE [Concomitant]
     Route: 048
     Dates: start: 20100625, end: 20100628
  55. PREDNISOLONE [Concomitant]
     Route: 048
     Dates: start: 20100709, end: 20100712
  56. PREDNISOLONE [Concomitant]
     Route: 048
     Dates: start: 20100924, end: 20101007
  57. ACTEMRA [Suspect]
     Indication: CASTLEMAN'S DISEASE
     Route: 042
     Dates: start: 20081031, end: 20090306
  58. PREDNISOLONE [Concomitant]
     Route: 048
     Dates: start: 20090627, end: 20090630
  59. PREDNISOLONE [Concomitant]
     Route: 048
     Dates: start: 20090725, end: 20090728
  60. PREDNISOLONE [Concomitant]
     Route: 048
     Dates: start: 20090919, end: 20090922
  61. PREDNISOLONE [Concomitant]
     Route: 048
     Dates: start: 20100305, end: 20100308
  62. PREDNISOLONE [Concomitant]
     Route: 048
     Dates: start: 20100319, end: 20100322
  63. PREDNISOLONE [Concomitant]
     Route: 048
     Dates: start: 20100723, end: 20100726
  64. BENIDIPINE HYDROCHLORIDE [Concomitant]
     Route: 048
     Dates: end: 20101215
  65. BISOLVON [Concomitant]
     Route: 048
     Dates: start: 20101215

REACTIONS (8)
  - ANTIBODY TEST POSITIVE [None]
  - HYPOGLYCAEMIA [None]
  - BLOOD URIC ACID INCREASED [None]
  - RENAL IMPAIRMENT [None]
  - HYPERKALAEMIA [None]
  - HYPERTRIGLYCERIDAEMIA [None]
  - HYPERTENSION [None]
  - AZOTAEMIA [None]
